FAERS Safety Report 5258277-9 (Version None)
Quarter: 2007Q1

REPORT INFORMATION
  Report Type: 
  Country: None (occurrence: None)
  Receive Date: 20070305
  Receipt Date: 20070220
  Transmission Date: 20070707
  Serious: Yes (Other)
  Sender: FDA-Public Use
  Company Number: 2006RR-03050

PATIENT
  Age: 33 Year
  Sex: Female

DRUGS (4)
  1. METFORMIN HCL [Suspect]
     Indication: DIABETES MELLITUS NON-INSULIN-DEPENDENT
     Dosage: 1 G, BID, ORAL
     Route: 048
  2. PREDNISOLONE [Suspect]
     Indication: UVEITIS
     Dosage: 45 MG, QD, UNK
  3. PIOGLITAZONE HYDROCHLORIDE (PIOGLITAZONE HYDROCHLORIDE) UNKNOWN [Suspect]
     Dosage: 45 MG, QD, UNK
  4. INSULIN [Concomitant]

REACTIONS (3)
  - DIABETES MELLITUS INADEQUATE CONTROL [None]
  - MACULAR OEDEMA [None]
  - RETINAL ANEURYSM [None]
